FAERS Safety Report 6244975-7 (Version None)
Quarter: 2009Q2

REPORT INFORMATION
  Report Type: 
  Country: None (occurrence: None)
  Receive Date: 20090625
  Receipt Date: 20090618
  Transmission Date: 20091009
  Serious: Yes (Death, Life-Threatening, Disabling, Other)
  Sender: FDA-Public Use
  Company Number: JP-JNJFOC-20090602569

PATIENT
  Sex: Female
  Weight: 32 kg

DRUGS (4)
  1. DOXORUBICIN HCL [Suspect]
     Route: 042
  2. DOXORUBICIN HCL [Suspect]
     Indication: OVARIAN CANCER RECURRENT
     Route: 042
  3. PACLITAXEL [Concomitant]
     Route: 065
  4. DEXAMETHASONE [Concomitant]
     Indication: OVARIAN CANCER
     Route: 042

REACTIONS (5)
  - ANAEMIA [None]
  - PLATELET COUNT DECREASED [None]
  - PNEUMONIA [None]
  - SEPSIS [None]
  - WHITE BLOOD CELL COUNT DECREASED [None]
